FAERS Safety Report 7046103-7 (Version None)
Quarter: 2010Q4

REPORT INFORMATION
  Report Type: 
  Country: None (occurrence: None)
  Receive Date: 20101014
  Receipt Date: 20101007
  Transmission Date: 20110411
  Serious: Yes (Death)
  Sender: FDA-Public Use
  Company Number: US-GILEAD-2010-0032410

PATIENT
  Sex: Male
  Weight: 78.088 kg

DRUGS (12)
  1. LETAIRIS [Suspect]
     Indication: PULMONARY ARTERIAL HYPERTENSION
     Route: 048
     Dates: start: 20090218
  2. REVATIO [Concomitant]
  3. ASPIRIN [Concomitant]
  4. SPIRONOLACTONE [Concomitant]
  5. ATENTOLOL [Concomitant]
  6. AZATHIOPRINE [Concomitant]
  7. GABAPENTIN [Concomitant]
  8. MECLIZINE [Concomitant]
  9. PREDNISONE [Concomitant]
  10. GLIPIZIDE [Concomitant]
  11. METFORMIN [Concomitant]
  12. FOLIC ACID [Concomitant]

REACTIONS (1)
  - DEATH [None]
